FAERS Safety Report 9736126 (Version 1)
Quarter: 2013Q4

REPORT INFORMATION
  Report Type: Spontaneous
  Country: US (occurrence: US)
  Receive Date: 20131206
  Receipt Date: 20131206
  Transmission Date: 20140711
  Serious: No
  Sender: FDA-Public Use
  Company Number: US-B.I. PHARMACEUTICALS,INC./RIDGEFIELD-2013-BI-38414BP

PATIENT
  Age: 73 Year
  Sex: Female

DRUGS (5)
  1. ZANTAC (RANITIDINE HYDROCHLORIDE) [Suspect]
     Indication: DYSPEPSIA
     Dosage: 300 MG
     Route: 048
     Dates: start: 20131116, end: 20131117
  2. ZANTAC (RANITIDINE HYDROCHLORIDE) [Suspect]
     Indication: DYSPEPSIA
  3. B COMPLEX [Concomitant]
     Route: 048
  4. FOLIC ACID [Concomitant]
     Route: 048
  5. VITAMIN D [Concomitant]
     Route: 048

REACTIONS (1)
  - Burning sensation [Recovered/Resolved]
